FAERS Safety Report 14172532 (Version 1)
Quarter: 2017Q4

REPORT INFORMATION
  Report Type: Spontaneous
  Country: US (occurrence: US)
  Receive Date: 20171108
  Receipt Date: 20171108
  Transmission Date: 20180321
  Serious: Yes (Hospitalization)
  Sender: FDA-Public Use
  Company Number: None

PATIENT
  Age: 67 Year
  Sex: Male
  Weight: 71 kg

DRUGS (1)
  1. PAZOPANIB [Suspect]
     Active Substance: PAZOPANIB
     Indication: RENAL CELL CARCINOMA
     Route: 048

REACTIONS (4)
  - Gastrointestinal haemorrhage [None]
  - Melaena [None]
  - Abdominal pain [None]
  - Intestinal perforation [None]

NARRATIVE: CASE EVENT DATE: 20171103
